FAERS Safety Report 19807371 (Version 1)
Quarter: 2021Q3

REPORT INFORMATION
  Report Type: Spontaneous
  Country: US (occurrence: US)
  Receive Date: 20210903
  Receipt Date: 20210903
  Transmission Date: 20211014
  Serious: No
  Sender: FDA-Public Use
  Company Number: None

PATIENT
  Sex: Male

DRUGS (3)
  1. TETRABENAZINE 12.5MG SLATE RUN PHARMACEUTICALS [Suspect]
     Active Substance: TETRABENAZINE
     Indication: DYSKINESIA
     Route: 048
     Dates: start: 20200406
  2. TETRABENAZINE 12.5MG SLATE RUN PHARMACEUTICALS [Suspect]
     Active Substance: TETRABENAZINE
     Indication: EXTRAPYRAMIDAL DISORDER
     Route: 048
     Dates: start: 20200406
  3. TETRABENAZINE 12.5MG SLATE RUN PHARMACEUTICALS [Suspect]
     Active Substance: TETRABENAZINE
     Indication: IMPAIRED GASTRIC EMPTYING
     Route: 048
     Dates: start: 20200406

REACTIONS (2)
  - Hypophagia [None]
  - Impaired gastric emptying [None]
